FAERS Safety Report 6401048-8 (Version None)
Quarter: 2009Q4

REPORT INFORMATION
  Report Type: 
  Country: None (occurrence: None)
  Receive Date: 20091013
  Receipt Date: 20091013
  Transmission Date: 20100525
  Serious: No
  Sender: FDA-Public Use
  Company Number: None

PATIENT
  Sex: Female
  Weight: 63.5036 kg

DRUGS (4)
  1. KENALOG-40 [Suspect]
     Indication: TONSILLAR INFLAMMATION
     Dosage: 40MG 1 INJECTION IM
     Route: 030
     Dates: start: 20081028
  2. KENALOG-40 [Suspect]
     Indication: VIRAL INFECTION
     Dosage: 40MG 1 INJECTION IM
     Route: 030
     Dates: start: 20081028
  3. KENALOG-40 [Suspect]
     Indication: TONSILLAR INFLAMMATION
     Dosage: 40MG 1 INJECTION IM
     Route: 030
     Dates: start: 20090120
  4. KENALOG-40 [Suspect]
     Indication: VIRAL INFECTION
     Dosage: 40MG 1 INJECTION IM
     Route: 030
     Dates: start: 20090120

REACTIONS (4)
  - INJECTION SITE INDURATION [None]
  - INJECTION SITE PAIN [None]
  - LYMPHADENOPATHY [None]
  - OROPHARYNGEAL PAIN [None]
